FAERS Safety Report 18109968 (Version 2)
Quarter: 2020Q3

REPORT INFORMATION
  Report Type: Spontaneous
  Country: US (occurrence: US)
  Receive Date: 20200804
  Receipt Date: 20200827
  Transmission Date: 20201103
  Serious: No
  Sender: FDA-Public Use
  Company Number: US-MEDICURE INC.-2088124

PATIENT
  Sex: Male

DRUGS (1)
  1. ZYPITAMAG [Suspect]
     Active Substance: PITAVASTATIN

REACTIONS (2)
  - Myalgia [Recovered/Resolved]
  - Drug ineffective [Unknown]
